FAERS Safety Report 19317292 (Version 1)
Quarter: 2021Q2

REPORT INFORMATION
  Report Type: Spontaneous
  Country: DE (occurrence: DE)
  Receive Date: 20210527
  Receipt Date: 20210527
  Transmission Date: 20210717
  Serious: Yes (Other)
  Sender: FDA-Public Use
  Company Number: NVSC2020DE231275

PATIENT
  Sex: Female

DRUGS (1)
  1. SANDIMMUN [Suspect]
     Active Substance: CYCLOSPORINE
     Indication: MYASTHENIA GRAVIS
     Dosage: UNK (STARTED SOME YEARS AGO)
     Route: 065

REACTIONS (3)
  - Product use in unapproved indication [Unknown]
  - Renal function test abnormal [Unknown]
  - Renal impairment [Unknown]
